FAERS Safety Report 19556073 (Version 1)
Quarter: 2021Q3

REPORT INFORMATION
  Report Type: Spontaneous
  Country: CN (occurrence: CN)
  Receive Date: 20210716
  Receipt Date: 20210716
  Transmission Date: 20211014
  Serious: Yes (Other)
  Sender: FDA-Public Use
  Company Number: CN-ROCHE-2757745

PATIENT
  Age: 49 Year
  Sex: Male

DRUGS (2)
  1. AVASTIN [Suspect]
     Active Substance: BEVACIZUMAB
     Indication: HEPATIC CANCER STAGE III
     Route: 065
     Dates: start: 20190123
  2. TECENTRIQ [Suspect]
     Active Substance: ATEZOLIZUMAB
     Indication: HEPATIC CANCER STAGE III
     Route: 041
     Dates: start: 20190123

REACTIONS (1)
  - Myelosuppression [Unknown]
